FAERS Safety Report 13667757 (Version 1)
Quarter: 2017Q2

REPORT INFORMATION
  Report Type: Spontaneous
  Country: IT (occurrence: IT)
  Receive Date: 20170620
  Receipt Date: 20170620
  Transmission Date: 20170830
  Serious: Yes (Hospitalization)
  Sender: FDA-Public Use
  Company Number: IT-SUN PHARMACEUTICAL INDUSTRIES LTD-2017RR-143204

PATIENT
  Age: 35 Year
  Sex: Female

DRUGS (4)
  1. FLUOXEREN 20 MG [Suspect]
     Active Substance: FLUOXETINE HYDROCHLORIDE
     Indication: DEPRESSION
     Dosage: 80 MG TOTAL
     Route: 048
     Dates: start: 20170315, end: 20170315
  2. HALDOL [Suspect]
     Active Substance: HALOPERIDOL
     Indication: AGITATION
     Dosage: 30 ML TOTAL
     Route: 048
     Dates: start: 20170315, end: 20170315
  3. DELORAZEPAM [Suspect]
     Active Substance: DELORAZEPAM
     Indication: ANXIETY
     Dosage: 17 DF TOTAL
     Route: 048
     Dates: start: 20170315, end: 20170315
  4. TOPIRAMATE. [Suspect]
     Active Substance: TOPIRAMATE
     Indication: EPILEPSY
     Dosage: 2 DF TOTAL
     Route: 048
     Dates: start: 20170315, end: 20170315

REACTIONS (3)
  - Intentional self-injury [Recovered/Resolved]
  - Electrocardiogram abnormal [Recovered/Resolved]
  - Drug use disorder [Recovered/Resolved]

NARRATIVE: CASE EVENT DATE: 20170315
